FAERS Safety Report 8077227-3 (Version None)
Quarter: 2012Q1

REPORT INFORMATION
  Report Type: 
  Country: None (occurrence: None)
  Receive Date: 20120127
  Receipt Date: 20120124
  Transmission Date: 20120608
  Serious: Yes (Other)
  Sender: FDA-Public Use
  Company Number: SE-BAYER-2012-003166

PATIENT
  Age: 45 Year
  Sex: Female

DRUGS (2)
  1. MIRENA [Suspect]
     Indication: CONTRACEPTION
     Dosage: UNK
     Dates: start: 20110906, end: 20111019
  2. MIRENA [Suspect]
     Dosage: UNK
     Route: 015
     Dates: start: 20111019, end: 20111214

REACTIONS (3)
  - GENITAL HAEMORRHAGE [None]
  - UTERINE LEIOMYOMA [None]
  - DEVICE DISLOCATION [None]
